FAERS Safety Report 5436285-2 (Version None)
Quarter: 2007Q3

REPORT INFORMATION
  Report Type: 
  Country: None (occurrence: None)
  Receive Date: 20070831
  Receipt Date: 20070824
  Transmission Date: 20080115
  Serious: Yes (Life-Threatening, Hospitalization)
  Sender: FDA-Public Use
  Company Number: JP-AMGEN-US204863

PATIENT
  Sex: Female
  Weight: 38 kg

DRUGS (17)
  1. ENBREL [Suspect]
     Indication: RHEUMATOID ARTHRITIS
     Route: 058
     Dates: start: 20060314, end: 20060317
  2. ENBREL [Suspect]
     Route: 058
     Dates: start: 20060322, end: 20060322
  3. ENBREL [Suspect]
     Route: 058
     Dates: start: 20060328, end: 20060428
  4. ENBREL [Suspect]
     Route: 058
     Dates: start: 20060808, end: 20060926
  5. ENBREL [Suspect]
     Route: 058
     Dates: start: 20061019, end: 20061218
  6. PREDONINE [Suspect]
     Indication: RHEUMATOID ARTHRITIS
     Dosage: 7.5 MG/DAY
     Route: 048
  7. METHOTREXATE [Suspect]
     Indication: RHEUMATOID ARTHRITIS
     Dosage: 2.5 MG/WEEK
     Route: 048
     Dates: start: 20060831, end: 20061219
  8. RHEUMATREX [Suspect]
     Indication: RHEUMATOID ARTHRITIS
     Dosage: 8 MG/WEEK
     Route: 048
     Dates: end: 20061219
  9. OSTELUC [Concomitant]
     Indication: RHEUMATOID ARTHRITIS
     Dosage: 400 MG/DAY
     Route: 048
     Dates: end: 20061226
  10. BONALON [Concomitant]
     Indication: OSTEOPOROSIS
     Dosage: 10 MG/DAY
     Route: 048
     Dates: start: 20060713, end: 20061226
  11. CALCITRIOL [Concomitant]
     Indication: OSTEOPOROSIS
     Dosage: 0.5 UG/DAY
     Route: 048
     Dates: start: 20060713, end: 20061226
  12. ISCOTIN [Concomitant]
     Indication: ANTIBIOTIC PROPHYLAXIS
     Dosage: 250 MG/DAY
     Dates: start: 20060807, end: 20061226
  13. FOLIAMIN [Concomitant]
     Dosage: UNKNOWN
     Route: 048
  14. MUCOSTA [Concomitant]
     Indication: GASTRITIS
     Dosage: 300 MG/DAY
     Route: 048
     Dates: end: 20061226
  15. DEPO-MEDROL [Concomitant]
     Indication: RHEUMATOID ARTHRITIS
     Dosage: UNKNOWN
     Route: 030
  16. LANSOPRAZOLE [Concomitant]
     Indication: REFLUX OESOPHAGITIS
     Dosage: 15 MG/DAY
     Route: 048
     Dates: end: 20061226
  17. PYRIDOXAL PHOSPHATE [Concomitant]
     Indication: PROPHYLAXIS
     Dosage: 30 MG/DAY
     Route: 048
     Dates: start: 20060808, end: 20061226

REACTIONS (3)
  - BRONCHITIS [None]
  - BRONCHOGENIC CYST [None]
  - PNEUMOCYSTIS JIROVECI PNEUMONIA [None]
